FAERS Safety Report 6596476-4 (Version None)
Quarter: 2010Q1

REPORT INFORMATION
  Report Type: 
  Country: None (occurrence: None)
  Receive Date: 20100216
  Receipt Date: 20100208
  Transmission Date: 20100710
  Serious: Yes (Death)
  Sender: FDA-Public Use
  Company Number: 2010US000408

PATIENT

DRUGS (3)
  1. PROGRAF [Suspect]
     Indication: LIVER TRANSPLANT
  2. MYCOPHENOLATE MOFETIL [Concomitant]
  3. PREDNISONE TAB [Concomitant]

REACTIONS (1)
  - PANCREATITIS HAEMORRHAGIC [None]
